FAERS Safety Report 7532262-6 (Version None)
Quarter: 2011Q2

REPORT INFORMATION
  Report Type: 
  Country: None (occurrence: None)
  Receive Date: 20110608
  Receipt Date: 20110603
  Transmission Date: 20111010
  Serious: Yes (Death, Hospitalization, Other)
  Sender: FDA-Public Use
  Company Number: PHHY2011BE48859

PATIENT
  Age: 75 Year
  Sex: Female

DRUGS (2)
  1. FLUOXETINE HCL [Suspect]
     Dosage: UNK UKN, UNK
  2. TRAMADOL HCL [Suspect]
     Dosage: UNK UKN, UNK

REACTIONS (7)
  - CARDIO-RESPIRATORY ARREST [None]
  - SUICIDAL IDEATION [None]
  - DRUG LEVEL INCREASED [None]
  - INTENTIONAL OVERDOSE [None]
  - DRUG INTERACTION [None]
  - RESPIRATORY FAILURE [None]
  - APNOEA [None]
